FAERS Safety Report 5195355-7 (Version None)
Quarter: 2006Q4

REPORT INFORMATION
  Report Type: 
  Country: None (occurrence: None)
  Receive Date: 20061229
  Receipt Date: 20061220
  Transmission Date: 20070319
  Serious: Yes (Other)
  Sender: FDA-Public Use
  Company Number: US-PFIZER INC-2006155093

PATIENT
  Sex: Male

DRUGS (7)
  1. GENOTROPIN [Suspect]
  2. CALCIUM [Concomitant]
  3. VITAMIN D [Concomitant]
  4. SYNTHROID [Concomitant]
  5. LOTREL [Concomitant]
  6. DEXAMETHASONE [Concomitant]
  7. ANDROGEL [Concomitant]

REACTIONS (1)
  - MALIGNANT MELANOMA STAGE IV [None]
